FAERS Safety Report 5507729-2 (Version None)
Quarter: 2007Q4

REPORT INFORMATION
  Report Type: 
  Country: None (occurrence: None)
  Receive Date: 20071105
  Receipt Date: 20071105
  Transmission Date: 20080405
  Serious: Yes (Other)
  Sender: FDA-Public Use
  Company Number: None

PATIENT
  Age: 83 Year
  Sex: Male

DRUGS (9)
  1. OXCARBAZEPINE [Suspect]
     Indication: PETIT MAL EPILEPSY
     Dosage: 300MG TWICE DAILY PO
     Route: 048
     Dates: start: 20071101, end: 20071102
  2. FOLIC ACID [Concomitant]
  3. JANTOVEN [Concomitant]
  4. LANOXIN [Concomitant]
  5. METHOTREXATE [Concomitant]
  6. PREDNISONE TAB [Concomitant]
  7. HYDROXYCHLOROQUINE SULFATE [Concomitant]
  8. FINASTERIDE [Concomitant]
  9. FLOMAX [Concomitant]

REACTIONS (4)
  - DIZZINESS [None]
  - DYSARTHRIA [None]
  - SOMNOLENCE [None]
  - VOMITING [None]
